FAERS Safety Report 7827168-9 (Version None)
Quarter: 2011Q4

REPORT INFORMATION
  Report Type: 
  Country: None (occurrence: None)
  Receive Date: 20111020
  Receipt Date: 20110516
  Transmission Date: 20120403
  Serious: No
  Sender: FDA-Public Use
  Company Number: US-BAYER-2011-043850

PATIENT

DRUGS (1)
  1. NEXAVAR [Suspect]

REACTIONS (3)
  - ARTHRALGIA [None]
  - UNEVALUABLE EVENT [None]
  - DIARRHOEA [None]
